FAERS Safety Report 6669154-0 (Version None)
Quarter: 2010Q2

REPORT INFORMATION
  Report Type: 
  Country: None (occurrence: None)
  Receive Date: 20100402
  Receipt Date: 20100323
  Transmission Date: 20101027
  Serious: Yes (Hospitalization)
  Sender: FDA-Public Use
  Company Number: 233025J10USA

PATIENT
  Age: 29 Year
  Sex: Female
  Weight: 145 kg

DRUGS (12)
  1. REBIF [Suspect]
     Indication: MULTIPLE SCLEROSIS
     Dosage: 44 MCG, 3 IN 1 WEEKS, SUBCUTANEOUS
     Route: 058
     Dates: start: 20090801
  2. CARDIZEM [Concomitant]
  3. DIOVAN [Concomitant]
  4. SPIRONOLACTONE [Concomitant]
  5. CELEXA [Concomitant]
  6. TOPICORT [Concomitant]
  7. VALIUM [Concomitant]
  8. NEURONTIN [Concomitant]
  9. HYDROCODONE (HYDROCODONE) [Concomitant]
  10. INSULIN (INSULIN) [Concomitant]
  11. LEVOTHYROXINE SODIUM [Concomitant]
  12. AMBIEN [Concomitant]

REACTIONS (13)
  - ABDOMINAL PAIN UPPER [None]
  - ASTHENIA [None]
  - BLOOD ELECTROLYTES ABNORMAL [None]
  - BLOOD GLUCOSE INCREASED [None]
  - DIARRHOEA [None]
  - MALAISE [None]
  - MULTIPLE SCLEROSIS RELAPSE [None]
  - NAUSEA [None]
  - NEUROGENIC BLADDER [None]
  - URINARY RETENTION [None]
  - VERTIGO [None]
  - VISION BLURRED [None]
  - VOMITING [None]
